FAERS Safety Report 6349548-3 (Version None)
Quarter: 2009Q3

REPORT INFORMATION
  Report Type: 
  Country: None (occurrence: None)
  Receive Date: 20090911
  Receipt Date: 20090903
  Transmission Date: 20100115
  Serious: Yes (Hospitalization)
  Sender: FDA-Public Use
  Company Number: DE-ABBOTT-09P-062-0595534-00

PATIENT
  Age: 79 Year
  Sex: Female
  Weight: 61 kg

DRUGS (10)
  1. KLARICID TABLETS [Suspect]
     Indication: BRONCHOPNEUMONIA
     Route: 048
     Dates: start: 20090708, end: 20090801
  2. CEFTRIAXON [Concomitant]
     Indication: BRONCHOPNEUMONIA
     Route: 042
     Dates: start: 20090708, end: 20090718
  3. CALCIMAGON-D3 [Concomitant]
     Indication: OSTEOPOROSIS
     Route: 048
     Dates: start: 20060101
  4. CYMBALTA [Concomitant]
     Indication: DEPRESSION
     Dates: start: 20070101
  5. HYDROCHLOROTHIAZIDE [Concomitant]
     Indication: HYPERTENSION
     Route: 048
     Dates: start: 20060101, end: 20090801
  6. MADOPART [Concomitant]
     Indication: PARKINSONISM
     Route: 048
  7. MUSARIL [Concomitant]
     Indication: ANKYLOSING SPONDYLITIS
     Route: 048
  8. PANTOZOL [Concomitant]
     Indication: PROPHYLAXIS AGAINST GASTROINTESTINAL ULCER
     Route: 048
     Dates: start: 20060101
  9. RAMIPRIL [Concomitant]
     Indication: HYPERTENSION
     Route: 048
  10. VOLTAREN [Concomitant]
     Indication: ANKYLOSING SPONDYLITIS
     Route: 048
     Dates: start: 20060101, end: 20090801

REACTIONS (2)
  - GASTROENTERITIS CLOSTRIDIAL [None]
  - SEPTIC SHOCK [None]
